FAERS Safety Report 6852680-9 (Version None)
Quarter: 2010Q3

REPORT INFORMATION
  Report Type: 
  Country: None (occurrence: None)
  Receive Date: 20100717
  Receipt Date: 20071119
  Transmission Date: 20110219
  Serious: No
  Sender: FDA-Public Use
  Company Number: US-PFIZER INC-2007099537

PATIENT
  Sex: Female
  Weight: 75 kg

DRUGS (5)
  1. CHANTIX [Suspect]
     Indication: SMOKING CESSATION THERAPY
     Dates: start: 20071024
  2. PERIOSTAT [Concomitant]
  3. MULTI-VITAMINS [Concomitant]
  4. ACETYLSALICYLIC ACID [Concomitant]
  5. ARTHROTEC [Concomitant]
     Indication: ARTHRITIS

REACTIONS (2)
  - ABNORMAL DREAMS [None]
  - SLEEP TALKING [None]
